FAERS Safety Report 19658025 (Version 1)
Quarter: 2021Q3

REPORT INFORMATION
  Report Type: Spontaneous
  Country: CA (occurrence: CA)
  Receive Date: 20210804
  Receipt Date: 20210804
  Transmission Date: 20211014
  Serious: Yes (Disabling)
  Sender: FDA-Public Use
  Company Number: CA-GILEAD-2021-0541005

PATIENT
  Sex: Male

DRUGS (7)
  1. BIOTIN [Concomitant]
     Active Substance: BIOTIN
     Dosage: 1 TAB DAILY, PRN
     Route: 048
  2. VITAMIN C [Concomitant]
     Active Substance: ASCORBIC ACID
     Dosage: 500 MG DAILY, PRN
     Route: 048
  3. BIKTARVY [Suspect]
     Active Substance: BICTEGRAVIR SODIUM\EMTRICITABINE\TENOFOVIR ALAFENAMIDE FUMARATE
     Indication: HIV INFECTION
     Dosage: 1 DOSAGE FORM, QD
     Route: 048
     Dates: start: 20210401
  4. VITAMIN D [VITAMIN D NOS] [Concomitant]
     Active Substance: VITAMIN D NOS
     Dosage: 1?2 TAB DAILY, PRN
     Route: 048
  5. MAGNESIUM [Concomitant]
     Active Substance: MAGNESIUM
     Dosage: 1 TAB DAILY, PRN
     Route: 048
  6. ZINC. [Concomitant]
     Active Substance: ZINC
     Dosage: 50 MG DAILY, PRN
     Route: 048
  7. VITAMIN B NOS [Concomitant]
     Active Substance: VITAMIN B
     Dosage: 1?2 TAB, QD
     Route: 048

REACTIONS (4)
  - Dysmorphophobia [Unknown]
  - Lipoatrophy [Unknown]
  - Mental disorder [Unknown]
  - Lipodystrophy acquired [Unknown]

NARRATIVE: CASE EVENT DATE: 20210428
